FAERS Safety Report 15928939 (Version 1)
Quarter: 2019Q1

REPORT INFORMATION
  Report Type: Report from Study
  Country: US (occurrence: US)
  Receive Date: 20190206
  Receipt Date: 20190206
  Transmission Date: 20190417
  Serious: Yes (Hospitalization)
  Sender: FDA-Public Use
  Company Number: US-PFIZER INC-2018438656

PATIENT
  Age: 78 Year
  Sex: Female

DRUGS (1)
  1. IBRANCE [Suspect]
     Active Substance: PALBOCICLIB
     Indication: BREAST CANCER FEMALE
     Dosage: 125 MG, CYCLIC (DAILY X 21 DAYS, OFF X 7 DAYS)
     Route: 048
     Dates: start: 20181006

REACTIONS (8)
  - Product dose omission [Unknown]
  - Cardiac failure congestive [Unknown]
  - White blood cell count decreased [Unknown]
  - Fatigue [Unknown]
  - Dyspnoea [Unknown]
  - Diarrhoea [Unknown]
  - Bladder prolapse [Unknown]
  - Weight increased [Unknown]

NARRATIVE: CASE EVENT DATE: 2018
